FAERS Safety Report 9787556 (Version 1)
Quarter: 2013Q4

REPORT INFORMATION
  Report Type: Spontaneous
  Country: GB (occurrence: None)
  Receive Date: 20131224
  Receipt Date: 20131224
  Transmission Date: 20140711
  Serious: Yes (Other)
  Sender: FDA-Public Use
  Company Number: AUR-APL-2013-10582

PATIENT
  Sex: Female

DRUGS (1)
  1. FLUOXETINE [Suspect]
     Indication: PREMENSTRUAL SYNDROME
     Route: 048

REACTIONS (5)
  - Depression [None]
  - Irritability [None]
  - Self esteem decreased [None]
  - Social phobia [None]
  - Drug ineffective [None]
